FAERS Safety Report 19181296 (Version 1)
Quarter: 2021Q2

REPORT INFORMATION
  Report Type: Spontaneous
  Country: US (occurrence: US)
  Receive Date: 20210426
  Receipt Date: 20210426
  Transmission Date: 20210717
  Serious: No
  Sender: FDA-Public Use
  Company Number: US-PFIZER INC-2019535802

PATIENT
  Age: 63 Year

DRUGS (1)
  1. PREMARIN [Suspect]
     Active Substance: ESTROGENS, CONJUGATED
     Dosage: 0.5 G, CYCLIC (USE 1/2 GRAM VAGINALLY DAILY FOR TWO WEEKS, THEN 1/2 GRAM VAGINALLY TWICE WEEKLY)
     Route: 067

REACTIONS (2)
  - Off label use [Unknown]
  - Dyslexia [Unknown]
